FAERS Safety Report 26109027 (Version 1)
Quarter: 2025Q4

REPORT INFORMATION
  Report Type: Report from Study
  Country: EU (occurrence: EU)
  Receive Date: 20251201
  Receipt Date: 20251201
  Transmission Date: 20260117
  Serious: Yes (Other)
  Sender: BRISTOL-MYERS SQUIBB COMPANY
  Company Number: EU-BRISTOL-MYERS SQUIBB COMPANY-2025-160780

PATIENT
  Age: 65 Year
  Sex: Male
  Weight: 68 kg

DRUGS (9)
  1. REPOTRECTINIB [Suspect]
     Active Substance: REPOTRECTINIB
     Indication: Astrocytoma, low grade
     Dosage: CYCLE 1
     Route: 048
     Dates: start: 20240103
  2. REPOTRECTINIB [Suspect]
     Active Substance: REPOTRECTINIB
     Dosage: CYCLE 5
     Route: 048
     Dates: start: 20240424
  3. REPOTRECTINIB [Suspect]
     Active Substance: REPOTRECTINIB
     Dosage: CYCLE 6
     Route: 048
     Dates: start: 20240521
  4. REPOTRECTINIB [Suspect]
     Active Substance: REPOTRECTINIB
     Dosage: CYCLE 7
     Route: 048
     Dates: start: 20240618
  5. REPOTRECTINIB [Suspect]
     Active Substance: REPOTRECTINIB
     Dosage: CYCLE 8
     Route: 048
     Dates: start: 20240723
  6. REPOTRECTINIB [Suspect]
     Active Substance: REPOTRECTINIB
     Dosage: CYCLE 9
     Route: 048
     Dates: start: 20240821
  7. REPOTRECTINIB [Suspect]
     Active Substance: REPOTRECTINIB
     Dosage: CYCLE 10
     Route: 048
     Dates: start: 20240917
  8. KEPPRA [Concomitant]
     Active Substance: LEVETIRACETAM
     Indication: Product used for unknown indication
     Dosage: INITIATION SINCE SURGICAL RESECTION PERFORMED ON 21-JUN-2019?250 - 0 - 250 MG PER DAY
  9. VALSARTAN AND HYDROCHLOROTHIAZIDE [Concomitant]
     Active Substance: HYDROCHLOROTHIAZIDE\VALSARTAN
     Indication: Product used for unknown indication
     Dosage: 80/12.5 MG

REACTIONS (3)
  - Myasthenic syndrome [Recovered/Resolved]
  - Lymphocytosis [Not Recovered/Not Resolved]
  - Condition aggravated [Not Recovered/Not Resolved]

NARRATIVE: CASE EVENT DATE: 20240408
